FAERS Safety Report 9958577 (Version 1)
Quarter: 2014Q1

REPORT INFORMATION
  Report Type: Report from Study
  Country: FR (occurrence: FR)
  Receive Date: 20140305
  Receipt Date: 20140305
  Transmission Date: 20141002
  Serious: Yes (Hospitalization)
  Sender: FDA-Public Use
  Company Number: FR-ROCHE-1354792

PATIENT
  Sex: Female

DRUGS (11)
  1. RITUXIMAB [Suspect]
     Indication: RHEUMATOID ARTHRITIS
     Route: 041
     Dates: start: 20071030
  2. RITUXIMAB [Suspect]
     Route: 041
     Dates: start: 20071115
  3. RITUXIMAB [Suspect]
     Route: 041
     Dates: start: 20080723
  4. RITUXIMAB [Suspect]
     Route: 041
     Dates: start: 20080806
  5. RITUXIMAB [Suspect]
     Route: 041
     Dates: start: 20100217
  6. RITUXIMAB [Suspect]
     Route: 041
     Dates: start: 20100302
  7. RITUXIMAB [Suspect]
     Route: 041
     Dates: start: 20101005
  8. RITUXIMAB [Suspect]
     Route: 041
     Dates: start: 20101019
  9. METHOTREXATE [Concomitant]
     Route: 065
  10. METHYLPREDNISOLONE [Concomitant]
     Route: 065
  11. PARACETAMOL [Concomitant]

REACTIONS (6)
  - Neutrophilic dermatosis [Not Recovered/Not Resolved]
  - Headache [Recovered/Resolved]
  - Epistaxis [Recovered/Resolved]
  - Productive cough [Recovered/Resolved]
  - Systemic lupus erythematosus [Recovered/Resolved]
  - Bacterial pyelonephritis [Recovered/Resolved]
